FAERS Safety Report 4528064-5 (Version None)
Quarter: 2004Q4

REPORT INFORMATION
  Report Type: 
  Country: None (occurrence: None)
  Receive Date: 20041123
  Receipt Date: 20040911
  Transmission Date: 20050328
  Serious: Yes (Hospitalization, Disabling, Other)
  Sender: FDA-Public Use
  Company Number: 2004037566

PATIENT
  Age: 50 Year
  Sex: Female

DRUGS (12)
  1. LIPITOR [Suspect]
     Indication: HYPERLIPIDAEMIA
     Dosage: 20 MG (20 MG, 1 IN 1 D), ORAL
     Route: 048
     Dates: start: 20000101, end: 20040519
  2. ROSIGLITAZONE (ROSIGLITAZONE) [Concomitant]
  3. LOPERAMIDE HCL [Concomitant]
  4. GLIPIZIDE [Concomitant]
  5. METFORMIN HCL [Concomitant]
  6. PAROXETINE HCL [Concomitant]
  7. ROSIGLITAZONE MALEATE [Concomitant]
  8. METFORMIN HYDROCHLORIDE (METFORMIN HYDOCHLORIDE) [Concomitant]
  9. PAROXETINE HCL [Concomitant]
  10. NAPROXEN [Concomitant]
  11. LANSOPRAZOLE [Concomitant]
  12. KETOCONAZOLE [Concomitant]

REACTIONS (2)
  - RHABDOMYOLYSIS [None]
  - ROTATOR CUFF SYNDROME [None]
